FAERS Safety Report 8621301 (Version 8)
Quarter: 2014Q3

REPORT INFORMATION
  Report Type: Report from Study
  Country: CA (occurrence: CA)
  Receive Date: 20120619
  Receipt Date: 20140804
  Transmission Date: 20150326
  Serious: Yes (Other)
  Sender: FDA-Public Use
  Company Number: PHHY2012CA050904

PATIENT
  Age: 49 Year
  Sex: Male

DRUGS (1)
  1. SANDOSTATIN LAR DEPOT [Suspect]
     Active Substance: OCTREOTIDE ACETATE
     Indication: RECTAL CANCER METASTATIC
     Dosage: 30 MG, EVERY 4 WEEKS
     Route: 030
     Dates: start: 20110218, end: 201404

REACTIONS (11)
  - Abdominal pain [Recovered/Resolved]
  - Fatigue [Unknown]
  - Renal neoplasm [Unknown]
  - Malignant neoplasm progression [Unknown]
  - Body temperature decreased [Unknown]
  - Drug ineffective [Unknown]
  - Blood pressure increased [Unknown]
  - Blood pressure decreased [Unknown]
  - Metastasis [Unknown]
  - Injection site haemorrhage [Unknown]
  - Hepatic mass [Unknown]

NARRATIVE: CASE EVENT DATE: 20130625
